FAERS Safety Report 26032055 (Version 3)
Quarter: 2025Q4

REPORT INFORMATION
  Report Type: Spontaneous
  Country: US (occurrence: US)
  Receive Date: 20251112
  Receipt Date: 20251204
  Transmission Date: 20260118
  Serious: Yes (Other)
  Sender: MERCK SHARP & DOHME LLC
  Company Number: US-009507513-2347138

PATIENT
  Sex: Male

DRUGS (4)
  1. KEYTRUDA [Suspect]
     Active Substance: PEMBROLIZUMAB
     Indication: Small cell lung cancer
     Dates: start: 2019
  2. KEYTRUDA [Suspect]
     Active Substance: PEMBROLIZUMAB
     Indication: Small cell lung cancer
     Dates: start: 20250711, end: 20251003
  3. GEMZAR [Suspect]
     Active Substance: GEMCITABINE HYDROCHLORIDE
     Indication: PD-L1 positive cancer
     Dates: start: 20250711
  4. ZYPREXA [Concomitant]
     Active Substance: OLANZAPINE

REACTIONS (41)
  - Cardiac ablation [Unknown]
  - Cardiac failure congestive [Unknown]
  - Eye pruritus [Unknown]
  - Dyspnoea [Unknown]
  - Hyperaesthesia eye [Unknown]
  - Malignant neoplasm progression [Unknown]
  - Pneumonia [Unknown]
  - Blindness [Unknown]
  - Foreign body sensation in eyes [Not Recovered/Not Resolved]
  - Nasal dryness [Unknown]
  - Photophobia [Unknown]
  - Socioeconomic precarity [Unknown]
  - Thyroid disorder [Unknown]
  - Cataract [Recovered/Resolved]
  - Dry eye [Not Recovered/Not Resolved]
  - Eye irritation [Not Recovered/Not Resolved]
  - Chest discomfort [Unknown]
  - Arthralgia [Not Recovered/Not Resolved]
  - Bone pain [Not Recovered/Not Resolved]
  - Chronic left ventricular failure [Unknown]
  - Colitis [Unknown]
  - Arteriosclerosis coronary artery [Unknown]
  - Deep vein thrombosis [Unknown]
  - Prostatic specific antigen increased [Unknown]
  - Radiotherapy [Recovered/Resolved]
  - Hypertension [Unknown]
  - Strabismus [Unknown]
  - Aortic aneurysm [Unknown]
  - Anaemia [Unknown]
  - Arterial occlusive disease [Unknown]
  - Joint stiffness [Unknown]
  - Atrial fibrillation [Unknown]
  - Chronic kidney disease [Unknown]
  - Type 2 diabetes mellitus [Unknown]
  - Malignant neoplasm progression [Unknown]
  - Varicose vein [Unknown]
  - Product use in unapproved indication [Unknown]
  - Seasonal allergy [Unknown]
  - Iliac artery occlusion [Unknown]
  - Peripheral vascular disorder [Unknown]
  - Colon cancer [Unknown]

NARRATIVE: CASE EVENT DATE: 20190101
